FAERS Safety Report 19734666 (Version 1)
Quarter: 2021Q3

REPORT INFORMATION
  Report Type: Spontaneous
  Country: GB (occurrence: SE)
  Receive Date: 20210823
  Receipt Date: 20210823
  Transmission Date: 20211014
  Serious: Yes (Life-Threatening, Hospitalization, Disabling, Other)
  Sender: FDA-Public Use
  Company Number: SE-ENDO PHARMACEUTICALS INC-2021-011180

PATIENT
  Age: 80 Year
  Sex: Male
  Weight: 78 kg

DRUGS (3)
  1. FORTESTA [Suspect]
     Active Substance: TESTOSTERONE
     Indication: ERECTILE DYSFUNCTION
     Dosage: 2 PERCENT 3 PUMP PRESSURE GEL/DAY, UNKNOWN
     Route: 003
     Dates: start: 202007, end: 202103
  2. FORTESTA [Suspect]
     Active Substance: TESTOSTERONE
     Indication: FATIGUE
  3. FORTESTA [Suspect]
     Active Substance: TESTOSTERONE
     Indication: DEPRESSED MOOD

REACTIONS (4)
  - Renal cancer [Not Recovered/Not Resolved]
  - Bladder cancer [Not Recovered/Not Resolved]
  - Off label use [Recovered/Resolved]
  - Benign neoplasm of skin [Not Recovered/Not Resolved]

NARRATIVE: CASE EVENT DATE: 202007
